FAERS Safety Report 6012185-4 (Version None)
Quarter: 2008Q4

REPORT INFORMATION
  Report Type: 
  Country: None (occurrence: None)
  Receive Date: 20081216
  Receipt Date: 20071211
  Transmission Date: 20090506
  Serious: Yes (Other)
  Sender: FDA-Public Use
  Company Number: US-WYE-H01674207

PATIENT
  Age: 59 Year
  Sex: Female
  Weight: 65.38 kg

DRUGS (4)
  1. EFFEXOR XR [Suspect]
     Indication: ANXIETY
     Dosage: ^37.5 MG -150 MG^, ORAL
     Route: 048
     Dates: start: 20070301, end: 20071114
  2. EFFEXOR XR [Suspect]
     Indication: PANIC DISORDER
     Dosage: ^37.5 MG -150 MG^, ORAL
     Route: 048
     Dates: start: 20070301, end: 20071114
  3. TRAZODONE HCL [Concomitant]
  4. PAXIL [Concomitant]

REACTIONS (2)
  - ALANINE AMINOTRANSFERASE INCREASED [None]
  - ASPARTATE AMINOTRANSFERASE INCREASED [None]
